FAERS Safety Report 4716658-3 (Version None)
Quarter: 2005Q3

REPORT INFORMATION
  Report Type: 
  Country: None (occurrence: None)
  Receive Date: 20050718
  Receipt Date: 20050706
  Transmission Date: 20060218
  Serious: Yes (Death, Hospitalization, Other)
  Sender: FDA-Public Use
  Company Number: GXKR2005AU01310

PATIENT
  Age: 62 Year
  Sex: Male

DRUGS (2)
  1. CEFTRIAXONE [Suspect]
     Indication: KLEBSIELLA INFECTION
     Dosage: INTRAVENOUS
     Route: 042
  2. VANCOMYCIN [Concomitant]

REACTIONS (9)
  - ASTHENIA [None]
  - CHEST PAIN [None]
  - CSF TEST ABNORMAL [None]
  - HYPOTENSION [None]
  - HYPOXIA [None]
  - KLEBSIELLA INFECTION [None]
  - NEUROLOGICAL SYMPTOM [None]
  - PULMONARY EMBOLISM [None]
  - URINARY RETENTION [None]
